FAERS Safety Report 21960012 (Version 8)
Quarter: 2024Q4

REPORT INFORMATION
  Report Type: Spontaneous
  Country: BR (occurrence: BR)
  Receive Date: 20230206
  Receipt Date: 20241228
  Transmission Date: 20250115
  Serious: Yes (Disabling, Other)
  Sender: CELLTRION
  Company Number: BR-CELLTRION INC.-2023BR002470

PATIENT

DRUGS (16)
  1. INFLIXIMAB [Suspect]
     Active Substance: INFLIXIMAB
     Indication: Ankylosing spondylitis
     Dosage: 5 AMPOULES EVERY 2 MONTHS (DATE START: MORE THAN YEAR AGO)
     Route: 042
     Dates: start: 20220726
  2. INFLIXIMAB [Suspect]
     Active Substance: INFLIXIMAB
     Dosage: 5AMPOULES EVERY 1 MONTH (DATE START: MORE THAN YEAR AGO)
     Route: 042
  3. INFLIXIMAB [Suspect]
     Active Substance: INFLIXIMAB
     Dosage: 5AMPOULES EVERY 2 MONTH
     Route: 042
     Dates: start: 20240628
  4. INFLIXIMAB [Suspect]
     Active Substance: INFLIXIMAB
     Dosage: 5 AMPOULES (100 MG EACH) EVERY 6 WEEKS
     Route: 042
     Dates: start: 20240814
  5. DULOXETINE HYDROCHLORIDE [Concomitant]
     Active Substance: DULOXETINE HYDROCHLORIDE
     Indication: Fibromyalgia
     Dosage: 2 CAPSULES PER DAY
     Route: 048
     Dates: start: 2018
  6. PREGABALIN [Concomitant]
     Active Substance: PREGABALIN
     Indication: Fibromyalgia
     Dosage: 1 CAPSULE PER DAY
     Route: 048
     Dates: start: 2018
  7. TRAMADOL [Concomitant]
     Active Substance: TRAMADOL
     Indication: Pain
     Dosage: EVERY 1 DAY
     Route: 048
     Dates: start: 2018
  8. TYLEX [CODEINE PHOSPHATE;PARACETAMOL] [Concomitant]
     Indication: Product used for unknown indication
     Dosage: EVERY 1 DAY
     Route: 048
     Dates: start: 2018
  9. CYCLOBENZAPRINE [Concomitant]
     Active Substance: CYCLOBENZAPRINE
     Indication: Insomnia
  10. RIVOTRIL [Concomitant]
     Active Substance: CLONAZEPAM
     Indication: Product used for unknown indication
     Dosage: 20 DROPS 3 TIMES A DAY
     Route: 048
  11. QUETIAPINE [Concomitant]
     Active Substance: QUETIAPINE
     Indication: Sleep disorder
     Dosage: 1 TABLET AT NIGHT
     Route: 048
  12. PRISTIQ EXTENDED-RELEASE [Concomitant]
     Active Substance: DESVENLAFAXINE SUCCINATE
     Indication: Anxiolytic therapy
     Dosage: 1 TABLET A DAY
     Route: 048
  13. LOSARTAN POTASSIUM [Concomitant]
     Active Substance: LOSARTAN POTASSIUM
     Indication: Hypertension
     Dosage: 2 TABLETS A DAY
     Route: 048
  14. SIMVASTATIN [Concomitant]
     Active Substance: SIMVASTATIN
     Indication: Blood cholesterol
  15. LURASIDONE [Concomitant]
     Active Substance: LURASIDONE
     Indication: Product used for unknown indication
     Dosage: UNK
     Route: 048
  16. DULOXETINE [Concomitant]
     Active Substance: DULOXETINE
     Indication: Product used for unknown indication
     Dosage: UNK
     Route: 048

REACTIONS (20)
  - Spinal disorder [Unknown]
  - Paralysis [Unknown]
  - Ankylosing spondylitis [Unknown]
  - Diabetes mellitus [Not Recovered/Not Resolved]
  - Spinal osteoarthritis [Unknown]
  - Tremor [Unknown]
  - Bone pain [Unknown]
  - Impatience [Unknown]
  - Intervertebral disc degeneration [Unknown]
  - Bone deformity [Unknown]
  - Emotional distress [Unknown]
  - Pain [Unknown]
  - Therapy interrupted [Unknown]
  - Product supply issue [Unknown]
  - Product distribution issue [Unknown]
  - Intentional product use issue [Unknown]
  - Inappropriate schedule of product administration [Unknown]
  - Inadequate aseptic technique in use of product [Unknown]
  - Therapeutic response shortened [Unknown]
  - Circumstance or information capable of leading to medication error [Unknown]
